FAERS Safety Report 8242318-0 (Version None)
Quarter: 2012Q1

REPORT INFORMATION
  Report Type: 
  Country: None (occurrence: None)
  Receive Date: 20120329
  Receipt Date: 20120322
  Transmission Date: 20120608
  Serious: Yes (Hospitalization, Other)
  Sender: FDA-Public Use
  Company Number: US-PFIZER INC-2011233845

PATIENT
  Sex: Female
  Weight: 25.1 kg

DRUGS (4)
  1. CHILDREN'S MOTRIN [Suspect]
     Indication: PYREXIA
     Dosage: UNK
     Dates: start: 20100204
  2. TYLENOL [Suspect]
     Indication: PYREXIA
     Dosage: UNK
     Route: 065
     Dates: start: 20100205
  3. NYQUIL [Suspect]
  4. NYQUIL [Suspect]
     Indication: PYREXIA
     Dosage: UNK
     Dates: start: 20100204

REACTIONS (4)
  - STREPTOCOCCUS TEST POSITIVE [None]
  - STEVENS-JOHNSON SYNDROME [None]
  - GENITAL LABIAL ADHESIONS [None]
  - TOXIC EPIDERMAL NECROLYSIS [None]
